FAERS Safety Report 17874098 (Version 1)
Quarter: 2020Q2

REPORT INFORMATION
  Report Type: Spontaneous
  Country: ES (occurrence: ES)
  Receive Date: 20200609
  Receipt Date: 20200609
  Transmission Date: 20200714
  Serious: Yes (Other)
  Sender: FDA-Public Use
  Company Number: ES-AUROBINDO-AUR-APL-2020-025034

PATIENT
  Sex: Female

DRUGS (9)
  1. GABAPENTIN. [Concomitant]
     Active Substance: GABAPENTIN
     Indication: CLUSTER HEADACHE
     Dosage: 1200 MILLIGRAM, ONCE A DAY
     Route: 048
  2. TOPIRAMATE. [Suspect]
     Active Substance: TOPIRAMATE
     Indication: CLUSTER HEADACHE
     Dosage: 100 MILLIGRAM, TWO TIMES A DAY
     Route: 048
  3. ZONISAMIDE. [Suspect]
     Active Substance: ZONISAMIDE
     Indication: CLUSTER HEADACHE
     Dosage: 100 MILLIGRAM, TWO TIMES A DAY
     Route: 048
  4. VERAPAMIL [Suspect]
     Active Substance: VERAPAMIL HYDROCHLORIDE
     Indication: CLUSTER HEADACHE
     Dosage: 120 MILLIGRAM, TWO TIMES A DAY
     Route: 048
  5. LAMOTRIGINE. [Suspect]
     Active Substance: LAMOTRIGINE
     Indication: CLUSTER HEADACHE
     Dosage: NO MORE THAN 50 MG DAILY
     Route: 048
  6. VALPROATE SODIUM. [Suspect]
     Active Substance: VALPROATE SODIUM
     Indication: CLUSTER HEADACHE
     Dosage: 500 MILLIGRAM, ONCE A DAY
     Route: 048
  7. INDOMETACIN [Suspect]
     Active Substance: INDOMETHACIN
     Indication: CLUSTER HEADACHE
     Dosage: 150 MILLIGRAM, ONCE A DAY
     Route: 048
  8. LITHIUM. [Suspect]
     Active Substance: LITHIUM
     Indication: CLUSTER HEADACHE
     Dosage: UNK, FOR SHORT TIME
     Route: 048
  9. PREDNISONE. [Suspect]
     Active Substance: PREDNISONE
     Indication: CLUSTER HEADACHE
     Dosage: 60 MILLIGRAM, ONCE A DAY
     Route: 048

REACTIONS (10)
  - Depressed mood [Unknown]
  - Tachycardia [Unknown]
  - Dizziness [Unknown]
  - Weight decreased [Unknown]
  - Depression [Unknown]
  - Vomiting [Unknown]
  - Drug ineffective [Unknown]
  - Palpitations [Unknown]
  - Tremor [Unknown]
  - Drug intolerance [Unknown]
